FAERS Safety Report 8194017-1 (Version None)
Quarter: 2012Q1

REPORT INFORMATION
  Report Type: 
  Country: None (occurrence: None)
  Receive Date: 20120308
  Receipt Date: 20120227
  Transmission Date: 20120608
  Serious: Yes (Other)
  Sender: FDA-Public Use
  Company Number: JP-MERCK-1203USA00216

PATIENT
  Age: 73 Year
  Sex: Male

DRUGS (6)
  1. MUCOSTA [Concomitant]
     Route: 065
  2. FEBUXOSTAT [Concomitant]
     Route: 065
  3. CANDESARTAN CILEXETIL [Concomitant]
     Route: 065
  4. ONON [Suspect]
     Route: 048
  5. PEPCID RPD [Suspect]
     Route: 048
  6. ALLEGRA [Concomitant]
     Route: 065

REACTIONS (1)
  - HYPOGLYCAEMIA [None]
